FAERS Safety Report 22243414 (Version 1)
Quarter: 2023Q2

REPORT INFORMATION
  Report Type: Spontaneous
  Country: US (occurrence: None)
  Receive Date: 20230420
  Receipt Date: 20230420
  Transmission Date: 20230721
  Serious: No
  Sender: FDA-Public Use
  Company Number: None

PATIENT
  Age: 64 Year
  Sex: Male
  Weight: 123.38 kg

DRUGS (27)
  1. IMATINIB MESYLATE [Suspect]
     Active Substance: IMATINIB MESYLATE
     Indication: Chronic myeloid leukaemia
     Dosage: FREQUENCY : DAILY;?
     Route: 048
  2. ACETAMINOPHEN [Concomitant]
     Active Substance: ACETAMINOPHEN
  3. ALBUTEROL SULFATE [Concomitant]
     Active Substance: ALBUTEROL SULFATE
  4. ASPIRIN [Concomitant]
     Active Substance: ASPIRIN
  5. BASAGLAR [Concomitant]
     Active Substance: INSULIN GLARGINE
  6. KWIKPEN [Concomitant]
  7. BRILINTA [Concomitant]
     Active Substance: TICAGRELOR
  8. CLOPIDOGREL [Concomitant]
     Active Substance: CLOPIDOGREL BISULFATE
  9. MELATONIN [Concomitant]
     Active Substance: MELATONIN
  10. DULOXETINE [Concomitant]
     Active Substance: DULOXETINE
  11. ENTRESTO [Concomitant]
     Active Substance: SACUBITRIL\VALSARTAN
  12. FARXIGA [Concomitant]
     Active Substance: DAPAGLIFLOZIN PROPANEDIOL
  13. FENOFIBRATE [Concomitant]
     Active Substance: FENOFIBRATE
  14. FINASTERIDE [Concomitant]
     Active Substance: FINASTERIDE
  15. GABAPENTIN [Concomitant]
     Active Substance: GABAPENTIN
  16. ISOSORBIDE [Concomitant]
     Active Substance: ISOSORBIDE
  17. LASIX [Concomitant]
     Active Substance: FUROSEMIDE
  18. LOSARTAN [Concomitant]
     Active Substance: LOSARTAN
  19. METFORMIN [Concomitant]
     Active Substance: METFORMIN HYDROCHLORIDE
  20. METOPROLOL [Concomitant]
     Active Substance: METOPROLOL
  21. NITROGLYCERIN [Concomitant]
     Active Substance: NITROGLYCERIN
  22. HERBALS\TURMERIC [Concomitant]
     Active Substance: HERBALS\TURMERIC
  23. ROPINIROLE [Concomitant]
     Active Substance: ROPINIROLE
  24. SPIRIVA [Concomitant]
     Active Substance: TIOTROPIUM BROMIDE MONOHYDRATE
  25. TRULICITY [Concomitant]
     Active Substance: DULAGLUTIDE
  26. ZETIA [Concomitant]
     Active Substance: EZETIMIBE
  27. NOVOLOG [Concomitant]
     Active Substance: INSULIN ASPART

REACTIONS (1)
  - Myocardial infarction [None]
